FAERS Safety Report 19019356 (Version 1)
Quarter: 2021Q1

REPORT INFORMATION
  Report Type: Spontaneous
  Country: JP (occurrence: JP)
  Receive Date: 20210316
  Receipt Date: 20210316
  Transmission Date: 20210420
  Serious: Yes (Hospitalization, Other)
  Sender: FDA-Public Use
  Company Number: JP-009507513-2001JPN001503J

PATIENT
  Age: 53 Year
  Sex: Male
  Weight: 71 kg

DRUGS (12)
  1. CARBOPLATIN. [Concomitant]
     Active Substance: CARBOPLATIN
     Indication: LUNG SQUAMOUS CELL CARCINOMA STAGE IV
     Dosage: 574 MILLIGRAM, Q3W
     Route: 041
     Dates: start: 20191206, end: 2020
  2. OXINORM (OXYCODONE HYDROCHLORIDE) [Concomitant]
     Active Substance: OXYCODONE HYDROCHLORIDE
     Indication: PAIN
     Dosage: 2.5 MILLIGRAM, PRN
     Route: 048
     Dates: start: 201905, end: 2021
  3. LEXAPRO [Concomitant]
     Active Substance: ESCITALOPRAM OXALATE
     Indication: DEPRESSION
     Dosage: 10 MILLIGRAM, QD
     Route: 048
     Dates: start: 201905, end: 2021
  4. LYRICA [Concomitant]
     Active Substance: PREGABALIN
     Indication: INTERCOSTAL NEURALGIA
     Dosage: 25 MILLIGRAM, BID
     Route: 048
     Dates: start: 201905, end: 2021
  5. PACLITAXEL. [Suspect]
     Active Substance: PACLITAXEL
     Indication: LUNG SQUAMOUS CELL CARCINOMA STAGE IV
     Dosage: 377, Q3W
     Route: 041
     Dates: start: 20191206, end: 2020
  6. TAPENTA [Concomitant]
     Active Substance: TAPENTADOL HYDROCHLORIDE
     Indication: PAIN
     Dosage: 50 MILLIGRAM, BID
     Route: 048
     Dates: start: 20190830, end: 2021
  7. ALPRAZOLAM. [Concomitant]
     Active Substance: ALPRAZOLAM
     Indication: DEPRESSION
     Dosage: 0.4 MILLIGRAM, TID
     Route: 048
     Dates: start: 201905, end: 2019
  8. ZALUTIA [Concomitant]
     Active Substance: TADALAFIL
     Indication: POLLAKIURIA
     Dosage: 0.5 MILLIGRAM, BID
     Route: 048
     Dates: start: 201905, end: 2021
  9. KEYTRUDA [Suspect]
     Active Substance: PEMBROLIZUMAB
     Indication: LUNG SQUAMOUS CELL CARCINOMA STAGE IV
     Dosage: 200 MILLIGRAM, Q3W
     Route: 041
     Dates: start: 20191206, end: 20191206
  10. BROTIZOLAM [Concomitant]
     Active Substance: BROTIZOLAM
     Indication: INSOMNIA
     Dosage: 0.25 MILLIGRAM, QD
     Route: 048
     Dates: start: 201905, end: 2021
  11. OLANZAPINE. [Concomitant]
     Active Substance: OLANZAPINE
     Indication: DEPRESSION
     Dosage: 2.5 MILLIGRAM, QD
     Route: 048
     Dates: start: 201905, end: 2021
  12. SYMPROIC [Concomitant]
     Active Substance: NALDEMEDINE
     Indication: CONSTIPATION
     Dosage: 0.2 MILLIGRAM, QD
     Route: 048
     Dates: start: 201905, end: 2021

REACTIONS (2)
  - Hypoaesthesia [Unknown]
  - Immune-mediated arthritis [Recovered/Resolved]

NARRATIVE: CASE EVENT DATE: 20191224
